FAERS Safety Report 5204675-9 (Version None)
Quarter: 2007Q1

REPORT INFORMATION
  Report Type: 
  Country: None (occurrence: None)
  Receive Date: 20070110
  Receipt Date: 20060607
  Transmission Date: 20070707
  Serious: No
  Sender: FDA-Public Use
  Company Number: US-BRISTOL-MYERS SQUIBB COMPANY-13409693

PATIENT
  Sex: Female

DRUGS (7)
  1. ABILIFY [Suspect]
     Indication: BIPOLAR I DISORDER
  2. ABILIFY [Suspect]
     Indication: ANXIETY
  3. KLONOPIN [Concomitant]
     Indication: BIPOLAR I DISORDER
  4. KLONOPIN [Concomitant]
     Indication: ANXIETY
  5. LAMICTAL [Concomitant]
     Indication: BIPOLAR I DISORDER
  6. LAMICTAL [Concomitant]
     Indication: ANXIETY
  7. SEROQUEL [Concomitant]
     Indication: ANXIETY

REACTIONS (3)
  - HICCUPS [None]
  - NAUSEA [None]
  - VOMITING [None]
